FAERS Safety Report 5992855-4 (Version None)
Quarter: 2008Q4

REPORT INFORMATION
  Report Type: 
  Country: None (occurrence: None)
  Receive Date: 20081209
  Receipt Date: 20080331
  Transmission Date: 20090506
  Serious: Yes (Death)
  Sender: FDA-Public Use
  Company Number: 08H-163-0314089-00

PATIENT
  Age: 85 Year
  Sex: Male
  Weight: 87.9978 kg

DRUGS (5)
  1. MORPHINE SULFATE INJ [Suspect]
     Indication: PROCEDURAL PAIN
     Dosage: 2MG/H4, CONTINUOUS, INTRAVENOUS
     Route: 042
     Dates: start: 20071218, end: 20071218
  2. ASPIRIN [Concomitant]
  3. COZAAR [Concomitant]
  4. HYDROCHLOROTHIAZIDE [Concomitant]
  5. HYTRIN [Concomitant]

REACTIONS (3)
  - PULSE ABSENT [None]
  - RESPIRATORY FAILURE [None]
  - UNRESPONSIVE TO STIMULI [None]
